FAERS Safety Report 24645060 (Version 2)
Quarter: 2025Q2

REPORT INFORMATION
  Report Type: Spontaneous
  Country: US (occurrence: US)
  Receive Date: 20241121
  Receipt Date: 20250607
  Transmission Date: 20250716
  Serious: No
  Sender: COHERUS
  Company Number: US-COHERUS BIOSCIENCES, Inc.-2023-COH-US000604

PATIENT

DRUGS (4)
  1. UDENYCA [Suspect]
     Active Substance: PEGFILGRASTIM-CBQV
     Indication: Ovarian cancer
     Dosage: 6 MG, Q3WEEKS
     Route: 058
     Dates: start: 20231108
  2. UDENYCA [Suspect]
     Active Substance: PEGFILGRASTIM-CBQV
     Route: 058
     Dates: start: 20231129
  3. ALENDRONATE [Concomitant]
     Active Substance: ALENDRONATE SODIUM
     Dosage: 10 MG, 1/WEEK
  4. VITAMIN D [Concomitant]
     Active Substance: VITAMIN D NOS
     Dosage: 50000 UNITS, 1/WEEK

REACTIONS (2)
  - Accidental exposure to product [Recovered/Resolved]
  - Product complaint [Unknown]

NARRATIVE: CASE EVENT DATE: 20231129
